FAERS Safety Report 4750326-7 (Version None)
Quarter: 2005Q3

REPORT INFORMATION
  Report Type: 
  Country: None (occurrence: None)
  Receive Date: 20050823
  Receipt Date: 20050809
  Transmission Date: 20060218
  Serious: Yes (Hospitalization)
  Sender: FDA-Public Use
  Company Number: AU-AMGEN-US145934

PATIENT
  Sex: Male
  Weight: 82 kg

DRUGS (11)
  1. NEUPOGEN [Suspect]
     Indication: PERIPHERAL BLOOD STEM CELL APHERESIS
     Route: 058
     Dates: start: 20050520, end: 20050524
  2. INTRAGAM [Concomitant]
     Dates: start: 20050527, end: 20050529
  3. CLOPIDOGREL BISULFATE [Concomitant]
  4. ATORVASTATIN [Concomitant]
  5. RAMIPRIL [Concomitant]
  6. FELDENE [Concomitant]
  7. FISH OIL [Concomitant]
  8. PERSANTIN [Concomitant]
     Route: 048
  9. PERHEXILINE MALEATE [Concomitant]
  10. BICOR [Concomitant]
  11. GLYCERYL TRINITRATE [Concomitant]

REACTIONS (2)
  - MEGAKARYOCYTES INCREASED [None]
  - THROMBOCYTOPENIA [None]
